FAERS Safety Report 4447396-2 (Version None)
Quarter: 2004Q3

REPORT INFORMATION
  Report Type: 
  Country: None (occurrence: None)
  Receive Date: 20040823
  Receipt Date: 20040712
  Transmission Date: 20050211
  Serious: Yes (Hospitalization)
  Sender: FDA-Public Use
  Company Number: PHEH2004US05854

PATIENT
  Age: 44 Year
  Sex: Male

DRUGS (7)
  1. ZELNORM [Suspect]
     Indication: IMPAIRED GASTRIC EMPTYING
     Dosage: 6 MG BID ORAL
     Route: 048
     Dates: start: 20040301, end: 20040525
  2. LOPRESSOR [Concomitant]
  3. ZOCOR [Concomitant]
  4. ALTACE [Concomitant]
  5. K-DUR 10 [Concomitant]
  6. NEXIUM [Concomitant]
  7. IMDUR [Concomitant]

REACTIONS (2)
  - ANGINA PECTORIS [None]
  - CHEST PAIN [None]
